FAERS Safety Report 6466309-5 (Version None)
Quarter: 2009Q4

REPORT INFORMATION
  Report Type: 
  Country: None (occurrence: None)
  Receive Date: 20091202
  Receipt Date: 20091120
  Transmission Date: 20100525
  Serious: Yes (Other)
  Sender: FDA-Public Use
  Company Number: US-ROCHE-670387

PATIENT
  Sex: Female

DRUGS (2)
  1. PEG-INTERFERON A-2A (RO 25-8310) [Suspect]
     Indication: HEPATITIS C
     Dosage: FORM: PFS; PATIENT IN WEEK 20 OF TREATMENT.
     Route: 065
     Dates: start: 20090702, end: 20091112
  2. RIBAVIRIN [Suspect]
     Indication: HEPATITIS C
     Dosage: DIVIDED DOSES; PATIENT IN WEEK 20 OF TREATMENT
     Route: 065
     Dates: start: 20090702

REACTIONS (4)
  - ABDOMINAL DISTENSION [None]
  - HEPATIC CIRRHOSIS [None]
  - HEPATIC ENZYME INCREASED [None]
  - PAIN [None]
